FAERS Safety Report 14208122 (Version 1)
Quarter: 2017Q4

REPORT INFORMATION
  Report Type: Spontaneous
  Country: US (occurrence: US)
  Receive Date: 20171120
  Receipt Date: 20171120
  Transmission Date: 20180321
  Serious: Yes (Disabling)
  Sender: FDA-Public Use
  Company Number: None

PATIENT
  Age: 74 Year
  Sex: Male
  Weight: 87.27 kg

DRUGS (12)
  1. LIPITOR [Concomitant]
     Active Substance: ATORVASTATIN CALCIUM
  2. GLUCOPHAGE [Concomitant]
     Active Substance: METFORMIN HYDROCHLORIDE
  3. PRINIVIL [Concomitant]
     Active Substance: LISINOPRIL
  4. NORVASC [Concomitant]
     Active Substance: AMLODIPINE BESYLATE
  5. ASCORBIC ACID. [Concomitant]
     Active Substance: ASCORBIC ACID
  6. TRULICITY [Suspect]
     Active Substance: DULAGLUTIDE
     Indication: TYPE 2 DIABETES MELLITUS
     Dosage: ?          OTHER FREQUENCY:WEEKLY;?
     Route: 058
     Dates: start: 20160725, end: 20170301
  7. ASPIRIN. [Concomitant]
     Active Substance: ASPIRIN
  8. ULTRAM [Concomitant]
     Active Substance: TRAMADOL HYDROCHLORIDE
  9. TENORMIN [Concomitant]
     Active Substance: ATENOLOL
  10. NOVOLOG [Concomitant]
     Active Substance: INSULIN ASPART
  11. THALITONE [Concomitant]
     Active Substance: CHLORTHALIDONE
  12. CIALIS [Concomitant]
     Active Substance: TADALAFIL

REACTIONS (2)
  - Diabetic amyotrophy [None]
  - Asthenia [None]

NARRATIVE: CASE EVENT DATE: 20161222
